FAERS Safety Report 16055006 (Version 1)
Quarter: 2019Q1

REPORT INFORMATION
  Report Type: Spontaneous
  Country: US (occurrence: US)
  Receive Date: 20190310
  Receipt Date: 20190310
  Transmission Date: 20190418
  Serious: Yes (Other)
  Sender: FDA-Public Use
  Company Number: US-ROCHE-2278877

PATIENT
  Sex: Female
  Weight: 80.36 kg

DRUGS (2)
  1. ACTEMRA [Suspect]
     Active Substance: TOCILIZUMAB
     Indication: TEMPORAL ARTERITIS
     Route: 058
     Dates: start: 2017
  2. PREDNISONE. [Concomitant]
     Active Substance: PREDNISONE
     Indication: ADRENAL INSUFFICIENCY
     Route: 065
     Dates: start: 201902

REACTIONS (5)
  - Malignant melanoma [Recovered/Resolved]
  - Basal cell carcinoma [Recovered/Resolved]
  - Red blood cell sedimentation rate increased [Recovered/Resolved]
  - Squamous cell carcinoma [Recovered/Resolved]
  - C-reactive protein increased [Recovered/Resolved]

NARRATIVE: CASE EVENT DATE: 2018
